FAERS Safety Report 7912676-2 (Version None)
Quarter: 2011Q4

REPORT INFORMATION
  Report Type: 
  Country: None (occurrence: None)
  Receive Date: 20111114
  Receipt Date: 20110804
  Transmission Date: 20120403
  Serious: No
  Sender: FDA-Public Use
  Company Number: US-BAYER-2011-071519

PATIENT
  Age: 75 Year
  Sex: Male
  Weight: 78 kg

DRUGS (2)
  1. ALEVE (CAPLET) [Suspect]
     Indication: BACK PAIN
     Dosage: 1 DF, UNK
     Route: 048
     Dates: start: 20110804, end: 20110804
  2. ASPIRIN [Concomitant]

REACTIONS (1)
  - BACK PAIN [None]
